FAERS Safety Report 7234619-X (Version None)
Quarter: 2011Q1

REPORT INFORMATION
  Report Type: 
  Country: None (occurrence: None)
  Receive Date: 20110120
  Receipt Date: 20110110
  Transmission Date: 20110831
  Serious: Yes (Hospitalization)
  Sender: FDA-Public Use
  Company Number: US-BIOGENIDEC-2011BI001183

PATIENT
  Age: 30 Year
  Sex: Female

DRUGS (1)
  1. AVONEX [Suspect]
     Indication: MULTIPLE SCLEROSIS
     Route: 030
     Dates: start: 20091222, end: 20101125

REACTIONS (5)
  - WEIGHT DECREASED [None]
  - PAIN [None]
  - DEHYDRATION [None]
  - LYMPHADENOPATHY [None]
  - FATIGUE [None]
